FAERS Safety Report 5066732-X (Version None)
Quarter: 2006Q3

REPORT INFORMATION
  Report Type: 
  Country: None (occurrence: None)
  Receive Date: 20060728
  Receipt Date: 20060718
  Transmission Date: 20061208
  Serious: Yes (Hospitalization)
  Sender: FDA-Public Use
  Company Number: 2006-04-0703

PATIENT
  Sex: Female
  Weight: 45.3597 kg

DRUGS (2)
  1. TEMODAR [Suspect]
     Indication: CENTRAL NERVOUS SYSTEM LYMPHOMA
     Dosage: ORAL
     Route: 048
     Dates: start: 20060101
  2. LEVOTHYROXIN [Concomitant]

REACTIONS (13)
  - BONE PAIN [None]
  - DIZZINESS [None]
  - DRY SKIN [None]
  - FALL [None]
  - GAIT DISTURBANCE [None]
  - HAEMATOMA [None]
  - HEADACHE [None]
  - INCORRECT DOSE ADMINISTERED [None]
  - JOINT SWELLING [None]
  - MEMORY IMPAIRMENT [None]
  - PLATELET COUNT DECREASED [None]
  - VERTIGO [None]
  - VISUAL DISTURBANCE [None]
